FAERS Safety Report 7261904-8 (Version None)
Quarter: 2011Q1

REPORT INFORMATION
  Report Type: 
  Country: None (occurrence: None)
  Receive Date: 20110130
  Receipt Date: 20101210
  Transmission Date: 20110831
  Serious: Yes (Other)
  Sender: FDA-Public Use
  Company Number: US-ABBOTT-10P-163-0691021-00

PATIENT
  Sex: Female
  Weight: 88.53 kg

DRUGS (9)
  1. COZAAR [Concomitant]
     Indication: HYPERTENSION
     Route: 048
  2. HUMIRA [Suspect]
     Indication: RHEUMATOID ARTHRITIS
     Route: 058
  3. TRAMADOL HCL [Concomitant]
     Indication: PRODUCT USED FOR UNKNOWN INDICATION
  4. FISH OIL [Concomitant]
     Indication: PRODUCT USED FOR UNKNOWN INDICATION
  5. GABAPENTIN [Concomitant]
     Indication: PRODUCT USED FOR UNKNOWN INDICATION
     Route: 048
  6. VITAMIN D [Concomitant]
     Indication: PRODUCT USED FOR UNKNOWN INDICATION
  7. NORVASC [Concomitant]
     Indication: HYPERTENSION
     Route: 048
  8. UNKNOWN MUSCLE RELAXER [Concomitant]
     Indication: MUSCLE RELAXANT THERAPY
  9. ASCORBIC ACID [Concomitant]
     Indication: PRODUCT USED FOR UNKNOWN INDICATION

REACTIONS (4)
  - NAUSEA [None]
  - PANCREATIC DISORDER [None]
  - PANCREATITIS [None]
  - ABDOMINAL PAIN [None]
